FAERS Safety Report 5414622-2 (Version None)
Quarter: 2007Q3

REPORT INFORMATION
  Report Type: 
  Country: None (occurrence: None)
  Receive Date: 20070731
  Receipt Date: 20070418
  Transmission Date: 20080115
  Serious: No
  Sender: FDA-Public Use
  Company Number: 2006PV022928

PATIENT
  Age: 63 Year
  Sex: Female
  Weight: 76.2 kg

DRUGS (6)
  1. EXENATIDE (EXENATIDE) PEN, DISPOSABLE [Suspect]
     Indication: TYPE 2 DIABETES MELLITUS
     Dosage: 5 UG, 2/D, SQ   5 UG, 2/D, SQ   10 UG, 2/D, SQ   5 UG, 2/D, SQ
     Route: 058
     Dates: start: 20060501, end: 20060601
  2. EXENATIDE (EXENATIDE) PEN, DISPOSABLE [Suspect]
     Indication: TYPE 2 DIABETES MELLITUS
     Dosage: 5 UG, 2/D, SQ   5 UG, 2/D, SQ   10 UG, 2/D, SQ   5 UG, 2/D, SQ
     Route: 058
     Dates: start: 20060701, end: 20060901
  3. EXENATIDE (EXENATIDE) PEN, DISPOSABLE [Suspect]
     Indication: TYPE 2 DIABETES MELLITUS
     Dosage: 5 UG, 2/D, SQ   5 UG, 2/D, SQ   10 UG, 2/D, SQ   5 UG, 2/D, SQ
     Route: 058
     Dates: start: 20060901
  4. EXENATIDE (EXENATIDE) PEN, DISPOSABLE [Suspect]
     Indication: TYPE 2 DIABETES MELLITUS
     Dosage: 5 UG, 2/D, SQ   5 UG, 2/D, SQ   10 UG, 2/D, SQ   5 UG, 2/D, SQ
     Route: 058
     Dates: start: 20060901
  5. EXENATIDE (EXENATIDE) PEN, DISPOSABLE [Suspect]
  6. METFORMIN HCL [Concomitant]

REACTIONS (2)
  - NAUSEA [None]
  - WEIGHT DECREASED [None]
